FAERS Safety Report 10331113 (Version 1)
Quarter: 2014Q3

REPORT INFORMATION
  Report Type: Spontaneous
  Country: US (occurrence: None)
  Receive Date: 20140718
  Receipt Date: 20140718
  Transmission Date: 20150326
  Serious: Yes (Hospitalization)
  Sender: FDA-Public Use
  Company Number: 2014RT000081

PATIENT
  Age: 27 Year
  Sex: Female
  Weight: 49.8 kg

DRUGS (2)
  1. CYSTARAN (MERCAPTAMINE HYDROCHLORIDE) [Concomitant]
     Dosage: 1200 MG, Q12H, ORAL
  2. PROCYSBI DELAYED-RELEASE [Suspect]
     Active Substance: CYSTEAMINE BITARTRATE
     Indication: AMINO ACID METABOLISM DISORDER
     Dosage: 1200 MG, Q12H, ORAL
     Route: 048
     Dates: start: 20130713

REACTIONS (1)
  - Burns third degree [None]

NARRATIVE: CASE EVENT DATE: 201405
